FAERS Safety Report 4745441-8 (Version None)
Quarter: 2005Q3

REPORT INFORMATION
  Report Type: 
  Country: None (occurrence: None)
  Receive Date: 20050812
  Receipt Date: 20041122
  Transmission Date: 20060218
  Serious: Yes (Other)
  Sender: FDA-Public Use
  Company Number: PHEH2004US11908

PATIENT
  Age: 85 Year
  Sex: Male
  Weight: 73.4827 kg

DRUGS (1)
  1. VISUDYNE [Suspect]
     Indication: MACULAR DEGENERATION
     Dosage: 5.7 ML DAILY IV
     Route: 042
     Dates: start: 20041028, end: 20041028

REACTIONS (3)
  - CHROMATOPSIA [None]
  - SCOTOMA [None]
  - VISUAL ACUITY REDUCED [None]
